FAERS Safety Report 24075917 (Version 2)
Quarter: 2024Q3

REPORT INFORMATION
  Report Type: Spontaneous
  Country: DK (occurrence: DK)
  Receive Date: 20240710
  Receipt Date: 20240718
  Transmission Date: 20241017
  Serious: Yes (Disabling, Other)
  Sender: CSL BEHRING
  Company Number: None

PATIENT
  Age: 61 Year
  Sex: Female

DRUGS (1)
  1. HIZENTRA [Suspect]
     Active Substance: HUMAN IMMUNOGLOBULIN G
     Indication: Chronic inflammatory demyelinating polyradiculoneuropathy
     Dosage: 50 ML, QW
     Route: 058
     Dates: start: 20240113

REACTIONS (2)
  - Chronic inflammatory demyelinating polyradiculoneuropathy [Unknown]
  - Retinopathy [Unknown]

NARRATIVE: CASE EVENT DATE: 20240101
